FAERS Safety Report 5409645-3 (Version None)
Quarter: 2007Q3

REPORT INFORMATION
  Report Type: 
  Country: None (occurrence: None)
  Receive Date: 20070807
  Receipt Date: 20070807
  Transmission Date: 20080115
  Serious: Yes (Other)
  Sender: FDA-Public Use
  Company Number: None

PATIENT
  Age: 65 Year
  Sex: Female
  Weight: 81.8 kg

DRUGS (1)
  1. AVELOX [Suspect]
     Dosage: 400MG DAILY IV
     Route: 042
     Dates: start: 20070801, end: 20070801

REACTIONS (2)
  - INFUSION SITE ERYTHEMA [None]
  - INFUSION SITE PRURITUS [None]
